FAERS Safety Report 21096421 (Version 1)
Quarter: 2022Q3

REPORT INFORMATION
  Report Type: Spontaneous
  Country: FR (occurrence: FR)
  Receive Date: 20220718
  Receipt Date: 20220718
  Transmission Date: 20221027
  Serious: Yes (Other)
  Sender: FDA-Public Use
  Company Number: FR-BELPHARMA-2022000025

PATIENT
  Sex: Male

DRUGS (23)
  1. MIRTAZAPINE [Suspect]
     Active Substance: MIRTAZAPINE
     Indication: Product used for unknown indication
     Dosage: 1 TABLET AT BEDTIME (DOSAGE FORM REPORTED AS TABLET)
     Route: 048
     Dates: start: 20220613, end: 20220619
  2. MIRTAZAPINE [Suspect]
     Active Substance: MIRTAZAPINE
     Dosage: 0.5 TABLET AT BEDTIME  (DOSAGE FORM REPORTED AS TABLET)
     Route: 048
     Dates: start: 20220620
  3. TEMOCILLIN [Suspect]
     Active Substance: TEMOCILLIN
     Indication: Sepsis
     Dosage: CONTINUOUS INFUSION; POWDER FOR SOLUTION FOR INJECTION/INFUSION
     Route: 042
     Dates: start: 20220608, end: 20220620
  4. TEMOCILLIN [Suspect]
     Active Substance: TEMOCILLIN
     Indication: Klebsiella infection
  5. TEMOCILLIN [Suspect]
     Active Substance: TEMOCILLIN
     Indication: Urinary tract infection
  6. SERTRALINE [Suspect]
     Active Substance: SERTRALINE HYDROCHLORIDE
     Indication: Product used for unknown indication
     Dosage: 150 MILLIGRAM, QD
     Route: 048
     Dates: start: 20220613, end: 20220619
  7. SERTRALINE [Suspect]
     Active Substance: SERTRALINE HYDROCHLORIDE
     Dosage: 100 MILLIGRAM, QD
     Route: 048
     Dates: start: 20220620
  8. MELATONIN [Concomitant]
     Active Substance: MELATONIN
     Indication: Product used for unknown indication
     Dosage: 1 TABLET AT BEDTIME (DOSAGE FORM: ALSO REPORTED AS TABLET)
     Route: 048
     Dates: start: 20220613
  9. KARDEGIC [Concomitant]
     Active Substance: ASPIRIN DL-LYSINE
     Indication: Product used for unknown indication
     Dosage: 1 SACHET AT LUNCHTIME
     Route: 048
     Dates: start: 20220613
  10. ACETAMINOPHEN [Concomitant]
     Active Substance: ACETAMINOPHEN
     Dosage: AT 00H, 06H, 12H 18H
     Route: 048
     Dates: start: 20220613
  11. LANSOPRAZOLE [Concomitant]
     Active Substance: LANSOPRAZOLE
     Indication: Product used for unknown indication
     Dosage: ONE CAPSULE IN THE MORNING
     Route: 048
     Dates: start: 20220613
  12. INSULIN ASPART [Concomitant]
     Active Substance: INSULIN ASPART
     Indication: Product used for unknown indication
     Dosage: AT 16H INSULINE PUMP, POSOLOGY IN IU/HOUR (CONCENTRATION: 100 INTERNATIONAL UNIT/MILLILITRE)
     Route: 058
     Dates: start: 20220613
  13. INSULIN ASPART [Concomitant]
     Active Substance: INSULIN ASPART
     Dosage: AT 02H INSULINE PUMP, POSOLOGY IN IU/HOUR (CONCENTRATION: 100 INTERNATIONAL UNIT/MILLILITRE)
     Route: 058
     Dates: start: 20220613
  14. INSULIN ASPART [Concomitant]
     Active Substance: INSULIN ASPART
     Dosage: AT 06H INSULINE PUMP, POSOLOGY IN IU/HOUR  (CONCENTRATION: 100 INTERNATIONAL UNIT/MILLILITRE)
     Route: 058
     Dates: start: 20220613
  15. INSULIN ASPART [Concomitant]
     Active Substance: INSULIN ASPART
     Dosage: AT 12H INSULINE PUMP, POSOLOGY IN IU/HOUR  (CONCENTRATION: 100 INTERNATIONAL UNIT/MILLILITRE)
     Route: 058
     Dates: start: 20220613
  16. INSULIN ASPART [Concomitant]
     Active Substance: INSULIN ASPART
     Dosage: AT 00H INSULINE PUMP, POSOLOGY IN IU/HOUR
     Route: 058
     Dates: start: 20220613
  17. INSULIN ASPART [Concomitant]
     Active Substance: INSULIN ASPART
     Dosage: BEFORE DINNER SYSTEMATIC MEAL-BOLUS (AT THE BEGINNING OF MEALS)
     Route: 058
     Dates: start: 20220613
  18. INSULIN ASPART [Concomitant]
     Active Substance: INSULIN ASPART
     Dosage: BEFORE LUNCHTIME SYSTEMATIC MEAL-BOLUS (AT THE BEGINNING OF MEALS)
     Route: 058
     Dates: start: 20220613
  19. INSULIN ASPART [Concomitant]
     Active Substance: INSULIN ASPART
     Dosage: BEFORE BREAKFAST SYSTEMATIC MEAL-BOLUS (AT THE BEGINNING OF MEALS)
     Route: 058
     Dates: start: 20220613
  20. SERETIDE [Concomitant]
     Active Substance: FLUTICASONE PROPIONATE\SALMETEROL XINAFOATE
     Indication: Product used for unknown indication
     Dosage: 1 INHALATION IN THE MORNING 1 INHALATION IN THE EVENING (28 DOSES + DISTRIBUTOR)
     Dates: start: 20220613
  21. POLYETHYLENE GLYCOLS [Concomitant]
     Active Substance: POLYETHYLENE GLYCOLS
     Indication: Product used for unknown indication
     Dosage: 1 SACHET IN THE MORNING 1 SACHET AT LUNCHTIME 1 SACHET IN THE EVENING
     Route: 048
     Dates: start: 20220613
  22. MORPHINE SULFATE [Concomitant]
     Active Substance: MORPHINE SULFATE
     Indication: Product used for unknown indication
     Dosage: 1 CAPSULE PER INTAKE, MAXIMUM 4 CAPSULES PER DAY (IF PAIN ABOVE 4/10)
     Route: 048
     Dates: start: 20220613
  23. OXAZEPAM [Concomitant]
     Active Substance: OXAZEPAM
     Indication: Product used for unknown indication
     Dosage: 1 TABLET PER INTAKE, MAXIMUM 3 TABLETS PER DAY (IF ANXIOUS)
     Route: 048
     Dates: start: 20220613

REACTIONS (1)
  - Cholestasis [Unknown]
